FAERS Safety Report 12780919 (Version 1)
Quarter: 2016Q3

REPORT INFORMATION
  Report Type: Spontaneous
  Country: JP (occurrence: JP)
  Receive Date: 20160926
  Receipt Date: 20160926
  Transmission Date: 20161109
  Serious: Yes (Other)
  Sender: FDA-Public Use
  Company Number: JP-PURDUE PHARMA-GBR-2016-0040657

PATIENT
  Sex: Male

DRUGS (2)
  1. OXYCONTIN [Suspect]
     Active Substance: OXYCODONE HYDROCHLORIDE
     Indication: CANCER PAIN
     Dosage: 20 MG, DAILY
     Route: 048
     Dates: start: 201609, end: 201609
  2. OXYCONTIN [Suspect]
     Active Substance: OXYCODONE HYDROCHLORIDE
     Dosage: UNK
     Route: 048
     Dates: start: 201609, end: 201609

REACTIONS (1)
  - Delirium [Not Recovered/Not Resolved]

NARRATIVE: CASE EVENT DATE: 20160909
